FAERS Safety Report 24321101 (Version 1)
Quarter: 2024Q3

REPORT INFORMATION
  Report Type: Spontaneous
  Country: US (occurrence: US)
  Receive Date: 20240916
  Receipt Date: 20240916
  Transmission Date: 20241017
  Serious: No
  Sender: LEO PHARM
  Company Number: US-LEO Pharma-373451

PATIENT
  Age: 26 Year
  Sex: Female

DRUGS (1)
  1. TACROLIMUS [Suspect]
     Active Substance: TACROLIMUS
     Indication: Product used for unknown indication

REACTIONS (2)
  - Hidradenitis [Unknown]
  - Disease progression [Unknown]
